FAERS Safety Report 13826278 (Version 2)
Quarter: 2017Q3

REPORT INFORMATION
  Report Type: Spontaneous
  Country: DE (occurrence: DE)
  Receive Date: 20170802
  Receipt Date: 20170803
  Transmission Date: 20171127
  Serious: Yes (Death)
  Sender: FDA-Public Use
  Company Number: PHHY2017DE112182

PATIENT
  Age: 66 Year
  Sex: Male

DRUGS (5)
  1. TRAMETINIB [Suspect]
     Active Substance: TRAMETINIB
     Indication: MENINGEAL NEOPLASM
     Dosage: 2 MG, QD
     Route: 065
  2. DABRAFENIB [Suspect]
     Active Substance: DABRAFENIB
     Indication: MENINGEAL NEOPLASM
  3. TRAMETINIB [Suspect]
     Active Substance: TRAMETINIB
     Indication: METASTASES TO CENTRAL NERVOUS SYSTEM
  4. DABRAFENIB [Suspect]
     Active Substance: DABRAFENIB
     Indication: SUPERFICIAL SPREADING MELANOMA STAGE IV
     Dosage: 150 MG, BID
     Route: 065
  5. DABRAFENIB [Suspect]
     Active Substance: DABRAFENIB
     Indication: METASTASES TO CENTRAL NERVOUS SYSTEM

REACTIONS (2)
  - Therapeutic response decreased [Fatal]
  - Ejection fraction decreased [Recovering/Resolving]
